FAERS Safety Report 5131636-0 (Version None)
Quarter: 2006Q4

REPORT INFORMATION
  Report Type: 
  Country: None (occurrence: None)
  Receive Date: 20061016
  Receipt Date: 20060926
  Transmission Date: 20070319
  Serious: Yes (Hospitalization)
  Sender: FDA-Public Use
  Company Number: TW200609005274

PATIENT
  Age: 23 Year
  Sex: Male

DRUGS (6)
  1. OLANZAPINE [Suspect]
     Dosage: 5 MG DAILY (1/D) ORAL
     Route: 048
     Dates: start: 20060615, end: 20060714
  2. DEPAKENE [Concomitant]
  3. RIVOTRIL /NOR/ (CLONAZEPAM) [Concomitant]
  4. STILNOX /FRA/ (ZOLPIDEM) [Concomitant]
  5. XANAX  /USA/ (ALPRAZOLAM) [Concomitant]
  6. DORMICUM ROCHE (MIDAZOLAM MALEATE) [Concomitant]

REACTIONS (1)
  - BIPOLAR I DISORDER [None]
